FAERS Safety Report 11273397 (Version 1)
Quarter: 2015Q3

REPORT INFORMATION
  Report Type: Spontaneous
  Country: US (occurrence: None)
  Receive Date: 20150714
  Receipt Date: 20150714
  Transmission Date: 20151125
  Serious: No
  Sender: FDA-Public Use
  Company Number: None

PATIENT
  Age: 45 Year
  Sex: Male

DRUGS (5)
  1. IBU [Concomitant]
     Active Substance: IBUPROFEN
  2. NASONEX [Suspect]
     Active Substance: MOMETASONE FUROATE
  3. AMOXICILLIN. [Concomitant]
     Active Substance: AMOXICILLIN
  4. TECFIDERA [Suspect]
     Active Substance: DIMETHYL FUMARATE
     Indication: MULTIPLE SCLEROSIS
     Dosage: 1 BID ORAL
     Route: 048
     Dates: start: 20150318, end: 20150713
  5. ZYRTEC [Concomitant]
     Active Substance: CETIRIZINE HYDROCHLORIDE

REACTIONS (5)
  - Nausea [None]
  - Diarrhoea [None]
  - Abdominal distension [None]
  - Constipation [None]
  - Flatulence [None]

NARRATIVE: CASE EVENT DATE: 20150711
